FAERS Safety Report 21782684 (Version 1)
Quarter: 2022Q4

REPORT INFORMATION
  Report Type: Report from Study
  Country: FR (occurrence: None)
  Receive Date: 20221227
  Receipt Date: 20221227
  Transmission Date: 20230113
  Serious: Yes (Other)
  Sender: FDA-Public Use
  Company Number: FR-Merck Healthcare KGaA-9374413

PATIENT
  Sex: Female

DRUGS (1)
  1. LEVOTHYROXINE [Suspect]
     Active Substance: LEVOTHYROXINE
     Indication: Product used for unknown indication
     Dosage: 25 (UNIT UNSPECIFIED)

REACTIONS (4)
  - Myocardial infarction [Unknown]
  - Cardiac discomfort [Unknown]
  - Blood pressure increased [Unknown]
  - Palpitations [Unknown]
